FAERS Safety Report 7000997-X (Version None)
Quarter: 2010Q3

REPORT INFORMATION
  Report Type: 
  Country: None (occurrence: None)
  Receive Date: 20100920
  Receipt Date: 20091006
  Transmission Date: 20110219
  Serious: No
  Sender: FDA-Public Use
  Company Number: US-ASTRAZENECA-2009SE18234

PATIENT
  Age: 32 Year
  Sex: Male

DRUGS (4)
  1. SEROQUEL XR [Suspect]
     Indication: BIPOLAR DISORDER
     Route: 048
     Dates: start: 20090902
  2. AMBIEN [Concomitant]
  3. CYMBALTA [Concomitant]
  4. ALPRAZOLAM [Concomitant]

REACTIONS (1)
  - HEADACHE [None]
